FAERS Safety Report 17885645 (Version 2)
Quarter: 2020Q2

REPORT INFORMATION
  Report Type: Other
  Country: NL (occurrence: NL)
  Receive Date: 20200611
  Receipt Date: 20200615
  Transmission Date: 20200714
  Serious: Yes (Hospitalization)
  Sender: FDA-Public Use
  Company Number: NL-BIOVITRUM-2020SE26590

PATIENT
  Sex: Male
  Weight: 7 kg

DRUGS (1)
  1. SYNAGIS [Suspect]
     Active Substance: PALIVIZUMAB
     Indication: ANTIVIRAL PROPHYLAXIS
     Dosage: 03-SEP-2019 68 MG MONTHLY, 03-OCT-2019 73 MG MONTHLY, 30-OCT-2019 83 MG MONTHLY, 26-NOV-2019 88 MG M
     Route: 030

REACTIONS (5)
  - Skin discolouration [Recovered/Resolved]
  - Nasopharyngitis [Recovering/Resolving]
  - Productive cough [Recovered/Resolved]
  - Oxygen saturation decreased [Unknown]
  - Respiratory syncytial virus infection [Recovered/Resolved]
